FAERS Safety Report 19904404 (Version 1)
Quarter: 2021Q4

REPORT INFORMATION
  Report Type: Spontaneous
  Country: PL (occurrence: PL)
  Receive Date: 20211001
  Receipt Date: 20211001
  Transmission Date: 20220303
  Serious: Yes (Hospitalization)
  Sender: FDA-Public Use
  Company Number: None

PATIENT
  Age: 28 Year
  Sex: Female
  Weight: 75 kg

DRUGS (1)
  1. CLORAZEPATE DIPOTASSIUM [Suspect]
     Active Substance: CLORAZEPATE DIPOTASSIUM
     Dosage: DOSE: 5 UNIT UNKNOWN, 15 DF
     Route: 048
     Dates: start: 20201219, end: 20201219

REACTIONS (4)
  - Agitation [Unknown]
  - Suicide attempt [Unknown]
  - Confusional state [Unknown]
  - Nausea [Unknown]
